FAERS Safety Report 19711626 (Version 4)
Quarter: 2022Q1

REPORT INFORMATION
  Report Type: Report from Study
  Country: US (occurrence: US)
  Receive Date: 20210816
  Receipt Date: 20220207
  Transmission Date: 20220423
  Serious: Yes (Death, Hospitalization)
  Sender: FDA-Public Use
  Company Number: US-TG THERAPEUTICS INC.-TGT002061

PATIENT
  Age: 69 Year
  Sex: Male

DRUGS (2)
  1. UMBRALISIB [Suspect]
     Active Substance: UMBRALISIB
     Indication: B-cell small lymphocytic lymphoma
     Dosage: 800 MILLIGRAM, QD WITH FOOD
     Route: 048
     Dates: start: 202106, end: 20211018
  2. ZANUBRUTINIB [Suspect]
     Active Substance: ZANUBRUTINIB
     Dosage: 80 MILLIGRAM

REACTIONS (12)
  - Death [Fatal]
  - COVID-19 [Unknown]
  - Chest pain [Unknown]
  - Productive cough [Unknown]
  - Parosmia [Unknown]
  - Dysphagia [Unknown]
  - Mobility decreased [Unknown]
  - Decreased appetite [Unknown]
  - Nausea [Unknown]
  - Vomiting [Unknown]
  - Asthenia [Unknown]
  - Product dispensing error [Unknown]

NARRATIVE: CASE EVENT DATE: 20211230
